FAERS Safety Report 23950326 (Version 1)
Quarter: 2024Q2

REPORT INFORMATION
  Report Type: Spontaneous
  Country: NL (occurrence: NL)
  Receive Date: 20240607
  Receipt Date: 20240607
  Transmission Date: 20240715
  Serious: Yes (Life-Threatening, Hospitalization, Other)
  Sender: FDA-Public Use
  Company Number: NL-PIRAMAL PHARMA LIMITED-2024-PPL-000429

PATIENT

DRUGS (7)
  1. FENTANYL [Interacting]
     Active Substance: FENTANYL\FENTANYL CITRATE
     Indication: Product used for unknown indication
     Dosage: 50 MICROGRAM
     Route: 042
  2. FENTANYL [Interacting]
     Active Substance: FENTANYL\FENTANYL CITRATE
     Dosage: 25 MICROGRAM
     Route: 042
  3. FENTANYL [Interacting]
     Active Substance: FENTANYL\FENTANYL CITRATE
     Dosage: 25 MICROGRAM
     Route: 042
  4. PIRITRAMIDE [Interacting]
     Active Substance: PIRITRAMIDE
     Indication: Analgesic therapy
     Dosage: 7 MILLIGRAM
     Route: 042
  5. BACLOFEN [Interacting]
     Active Substance: BACLOFEN
     Indication: Cerebral palsy
     Dosage: 50 MICROGRAM/DAY
     Route: 037
  6. BACLOFEN [Interacting]
     Active Substance: BACLOFEN
     Dosage: 12 MICROGRAM/DAY
     Route: 037
  7. VALPROIC ACID [Concomitant]
     Active Substance: VALPROIC ACID
     Indication: Product used for unknown indication
     Dosage: 200 MILLIGRAM/2DD

REACTIONS (3)
  - Unresponsive to stimuli [Recovered/Resolved]
  - Hypotonia [Recovered/Resolved]
  - Drug interaction [Unknown]

NARRATIVE: CASE EVENT DATE: 20100101
